FAERS Safety Report 18481801 (Version 1)
Quarter: 2020Q4

REPORT INFORMATION
  Report Type: Spontaneous
  Country: GB (occurrence: GB)
  Receive Date: 20201109
  Receipt Date: 20201109
  Transmission Date: 20210114
  Serious: Yes (Death, Other)
  Sender: FDA-Public Use
  Company Number: NVSC2020GB300232

PATIENT
  Age: 61 Year
  Sex: Male

DRUGS (3)
  1. DOCETAXEL. [Suspect]
     Active Substance: DOCETAXEL
     Indication: PROSTATE CANCER
     Dosage: 75 MG/M2, CYCLIC (QCY)
     Route: 042
     Dates: start: 20180321, end: 20180321
  2. DOCETAXEL. [Suspect]
     Active Substance: DOCETAXEL
     Dosage: 75 MG/M2, CYCLIC (QCY)
     Route: 042
     Dates: start: 20180502, end: 20180502
  3. DOCETAXEL. [Suspect]
     Active Substance: DOCETAXEL
     Dosage: 75 MG/M2, CYCLIC (QCY)
     Route: 042
     Dates: start: 20180411, end: 20180411

REACTIONS (6)
  - Metastases to liver [Fatal]
  - Liver function test abnormal [Unknown]
  - Joint swelling [Not Recovered/Not Resolved]
  - Condition aggravated [Fatal]
  - Platelet count decreased [Unknown]
  - Blood test abnormal [Unknown]

NARRATIVE: CASE EVENT DATE: 20180523
